FAERS Safety Report 6194699-X (Version None)
Quarter: 2009Q2

REPORT INFORMATION
  Report Type: 
  Country: None (occurrence: None)
  Receive Date: 20090519
  Receipt Date: 20090315
  Transmission Date: 20091009
  Serious: No
  Sender: FDA-Public Use
  Company Number: US-BAYER-200911132BCC

PATIENT
  Sex: Male

DRUGS (1)
  1. ALEVE CAPLETS/GELS [Suspect]
     Indication: MUSCULOSKELETAL PAIN
     Dosage: CONSUMER TAKES 2-4 ALEVE PER DAY 6-7 DAYS PER WEEK
     Route: 048

REACTIONS (1)
  - NO ADVERSE EVENT [None]
